FAERS Safety Report 5018921-8 (Version None)
Quarter: 2006Q2

REPORT INFORMATION
  Report Type: 
  Country: None (occurrence: None)
  Receive Date: 20060606
  Receipt Date: 20060523
  Transmission Date: 20061013
  Serious: Yes (Other)
  Sender: FDA-Public Use
  Company Number: PHHO2006FR08350

PATIENT
  Sex: Male

DRUGS (3)
  1. CORTICOSTEROIDS [Suspect]
     Indication: HEART TRANSPLANT
  2. MYCOPHENOLATE MOFETIL [Suspect]
     Indication: HEART TRANSPLANT
     Dosage: 3 G/DAY
     Route: 048
  3. CYCLOSPORINE [Suspect]
     Indication: HEART TRANSPLANT

REACTIONS (1)
  - DIABETES MELLITUS [None]
